FAERS Safety Report 16254711 (Version 1)
Quarter: 2019Q2

REPORT INFORMATION
  Report Type: Spontaneous
  Country: FR (occurrence: FR)
  Receive Date: 20190430
  Receipt Date: 20190430
  Transmission Date: 20190711
  Serious: Yes (Hospitalization)
  Sender: FDA-Public Use
  Company Number: FR-AUROBINDO-AUR-APL-2019-023195

PATIENT

DRUGS (1)
  1. LEVOFLOXACIN. [Suspect]
     Active Substance: LEVOFLOXACIN
     Indication: ARTHRITIS BACTERIAL
     Dosage: UNK
     Route: 048
     Dates: start: 20190208, end: 20190308

REACTIONS (2)
  - Eosinophilia [Recovered/Resolved]
  - Vascular purpura [Recovered/Resolved]

NARRATIVE: CASE EVENT DATE: 20190305
